FAERS Safety Report 26084153 (Version 1)
Quarter: 2025Q4

REPORT INFORMATION
  Report Type: Spontaneous
  Country: GB (occurrence: GB)
  Receive Date: 20251124
  Receipt Date: 20251124
  Transmission Date: 20260117
  Serious: Yes (Other)
  Sender: SANDOZ
  Company Number: None

PATIENT
  Age: 32 Year
  Sex: Female
  Weight: 54 kg

DRUGS (6)
  1. AMOXICILLIN [Suspect]
     Active Substance: AMOXICILLIN
     Indication: Ill-defined disorder
     Dosage: UNK
     Route: 065
     Dates: start: 20230701
  2. CEPHALEXIN [Concomitant]
     Active Substance: CEPHALEXIN
     Indication: Ill-defined disorder
     Dosage: TAKE ONE 3 TIMES/DAY
     Route: 065
     Dates: start: 20251118
  3. FERROUS FUMARATE [Concomitant]
     Active Substance: FERROUS FUMARATE
     Indication: Ill-defined disorder
     Dosage: ONE TO BE TAKEN ONCE A DAY WITH ORANGE JUICE AN...
     Route: 065
     Dates: start: 20250214, end: 20251103
  4. MEFENAMIC ACID [Concomitant]
     Active Substance: MEFENAMIC ACID
     Indication: Ill-defined disorder
     Dosage: ONE TO BE TAKEN THREE TIMES A DAY AFTER FOOD, J...
     Route: 065
     Dates: start: 20250214, end: 20251104
  5. SUMATRIPTAN [Concomitant]
     Active Substance: SUMATRIPTAN
     Indication: Ill-defined disorder
     Dosage: TAKE ONE TABLET FOR MIGRAINE ATTACK.  IF SYMPTO...
     Route: 065
     Dates: start: 20240523, end: 20251103
  6. TRANEXAMIC ACID [Concomitant]
     Active Substance: TRANEXAMIC ACID
     Indication: Ill-defined disorder
     Dosage: TWO TO BE TAKEN THREE TIMES A DAY FOR UP TO 4 D...
     Route: 065
     Dates: start: 20250214, end: 20251104

REACTIONS (2)
  - Lip swelling [Recovered/Resolved]
  - Peripheral swelling [Unknown]

NARRATIVE: CASE EVENT DATE: 20230701
